APPROVED DRUG PRODUCT: ALPRAZOLAM
Active Ingredient: ALPRAZOLAM
Strength: 1MG/ML
Dosage Form/Route: CONCENTRATE;ORAL
Application: A074312 | Product #001
Applicant: HIKMA PHARMACEUTICALS USA INC
Approved: Oct 31, 1993 | RLD: No | RS: Yes | Type: RX